FAERS Safety Report 10173644 (Version 2)
Quarter: 2014Q2

REPORT INFORMATION
  Report Type: Spontaneous
  Country: US (occurrence: US)
  Receive Date: 20140515
  Receipt Date: 20140515
  Transmission Date: 20141212
  Serious: Yes (Hospitalization, Other)
  Sender: FDA-Public Use
  Company Number: US-RB-065841-14

PATIENT
  Age: 43 Year
  Sex: Female

DRUGS (5)
  1. SALICYLIC ACID [Suspect]
     Indication: PRODUCT USED FOR UNKNOWN INDICATION
  2. OXYMORPHONE [Concomitant]
     Indication: BACK PAIN
  3. CAFFEINE [Concomitant]
     Indication: MIGRAINE
  4. ACETAMINOPHEN [Concomitant]
     Indication: MIGRAINE
  5. BUTALBITAL [Concomitant]
     Indication: MIGRAINE

REACTIONS (15)
  - Toxicity to various agents [Recovering/Resolving]
  - Systemic inflammatory response syndrome [Unknown]
  - Pulmonary hypertension [Unknown]
  - Pulmonary oedema [Unknown]
  - Hyperdynamic left ventricle [Unknown]
  - Respiratory alkalosis [Unknown]
  - Metabolic acidosis [Unknown]
  - Agitation [Unknown]
  - Confusional state [Unknown]
  - Blood pressure decreased [Unknown]
  - Dilatation atrial [Unknown]
  - Dyspnoea [Unknown]
  - Respiratory rate increased [Unknown]
  - Heart rate increased [Unknown]
  - Body temperature decreased [Unknown]
